FAERS Safety Report 16651769 (Version 1)
Quarter: 2019Q3

REPORT INFORMATION
  Report Type: Spontaneous
  Country: US (occurrence: US)
  Receive Date: 20190731
  Receipt Date: 20190731
  Transmission Date: 20191004
  Serious: No
  Sender: FDA-Public Use
  Company Number: US-PFIZER INC-2018436372

PATIENT
  Age: 63 Year
  Sex: Male
  Weight: 102 kg

DRUGS (4)
  1. LYRICA [Suspect]
     Active Substance: PREGABALIN
     Indication: NEURALGIA
  2. LYRICA [Suspect]
     Active Substance: PREGABALIN
     Indication: PAIN
     Dosage: 75 MG, 2X/DAY (75MG BY MOUTH TWICE A DAY; CAN TAKE AN EXTRA ONE IF HE HAS A GOUT FLARE UP)
     Route: 048
  3. COLCRYS [Concomitant]
     Active Substance: COLCHICINE
     Indication: GOUT
     Dosage: UNK
  4. ADVIL [IBUPROFEN] [Concomitant]
     Active Substance: IBUPROFEN
     Indication: GOUT
     Dosage: UNK

REACTIONS (4)
  - Gout [Recovering/Resolving]
  - Peripheral swelling [Recovering/Resolving]
  - Intentional product use issue [Unknown]
  - Fibromyalgia [Recovering/Resolving]

NARRATIVE: CASE EVENT DATE: 20190722
